FAERS Safety Report 6677868-1 (Version None)
Quarter: 2010Q2

REPORT INFORMATION
  Report Type: 
  Country: None (occurrence: None)
  Receive Date: 20100412
  Receipt Date: 20100330
  Transmission Date: 20101027
  Serious: No
  Sender: FDA-Public Use
  Company Number: US-ALEXION-A201000322

PATIENT
  Sex: Male

DRUGS (2)
  1. SOLIRIS [Suspect]
  2. PREDNISOLONE [Concomitant]
     Dosage: 5 MG, UNK

REACTIONS (3)
  - INFLUENZA [None]
  - NASAL CONGESTION [None]
  - OROPHARYNGEAL PAIN [None]
